FAERS Safety Report 5775050-3 (Version None)
Quarter: 2008Q2

REPORT INFORMATION
  Report Type: 
  Country: None (occurrence: None)
  Receive Date: 20080617
  Receipt Date: 20080617
  Transmission Date: 20081010
  Serious: No
  Sender: FDA-Public Use
  Company Number: None

PATIENT
  Age: 64 Year
  Sex: Female
  Weight: 76.4 kg

DRUGS (13)
  1. HEPARIN [Suspect]
     Indication: DEEP VEIN THROMBOSIS
     Dosage: 1200-}100-}750 UNITS/HR
     Dates: start: 20080511, end: 20080512
  2. HEPARIN [Suspect]
     Indication: PROPHYLAXIS
     Dosage: 1200-}100-}750 UNITS/HR
     Dates: start: 20080511, end: 20080512
  3. HEPARIN [Suspect]
     Indication: PULMONARY EMBOLISM
     Dosage: 1200-}100-}750 UNITS/HR
     Dates: start: 20080511, end: 20080512
  4. DOCUSATE [Concomitant]
  5. DOXYCYCLINE [Concomitant]
  6. FENTANYL TRANSDERMAL SYSTEM [Concomitant]
  7. INSULIN ASP [Concomitant]
  8. LANSOPRAZOLE [Concomitant]
  9. MONTELUKAST SODIUM [Concomitant]
  10. NIFEDIPINE [Concomitant]
  11. PREDNISONE TAB [Concomitant]
  12. REPAQLINIDE [Concomitant]
  13. VALSARTAN [Concomitant]

REACTIONS (6)
  - ACTIVATED PARTIAL THROMBOPLASTIN TIME PROLONGED [None]
  - CONTUSION [None]
  - ECCHYMOSIS [None]
  - HAEMATOMA [None]
  - HAEMOGLOBIN DECREASED [None]
  - NAUSEA [None]
